FAERS Safety Report 12816210 (Version 2)
Quarter: 2016Q4

REPORT INFORMATION
  Report Type: Spontaneous
  Country: JP (occurrence: JP)
  Receive Date: 20161005
  Receipt Date: 20161020
  Transmission Date: 20170207
  Serious: Yes (Other)
  Sender: FDA-Public Use
  Company Number: JP-ASTRAZENECA-2015SE59386

PATIENT
  Age: 68 Year
  Sex: Female

DRUGS (2)
  1. ARIMIDEX [Suspect]
     Active Substance: ANASTROZOLE
     Indication: BREAST CANCER FEMALE
     Route: 048
  2. ARIMIDEX [Suspect]
     Active Substance: ANASTROZOLE
     Indication: BREAST CANCER FEMALE
     Route: 048
     Dates: start: 201111

REACTIONS (30)
  - Musculoskeletal pain [Unknown]
  - Gait disturbance [Unknown]
  - Renal cancer [Unknown]
  - Insomnia [Unknown]
  - Foot deformity [Unknown]
  - Pallor [Recovering/Resolving]
  - Fall [Unknown]
  - Discomfort [Unknown]
  - Diarrhoea [Recovering/Resolving]
  - Blood cholesterol increased [Unknown]
  - Keloid scar [Unknown]
  - Tremor [Unknown]
  - Joint instability [Unknown]
  - Balance disorder [Unknown]
  - Grip strength decreased [Unknown]
  - Toothache [Unknown]
  - Compression fracture [Unknown]
  - Alopecia [Unknown]
  - Stress [Unknown]
  - Arthralgia [Unknown]
  - Osteoporosis [Unknown]
  - Haematuria [Unknown]
  - Anaemia [Unknown]
  - Inner ear disorder [Unknown]
  - Pain of skin [Unknown]
  - Chromaturia [Recovered/Resolved]
  - Cholelithiasis [Unknown]
  - Blood glucose decreased [Not Recovered/Not Resolved]
  - Tooth disorder [Unknown]
  - Arthritis [Unknown]

NARRATIVE: CASE EVENT DATE: 2012
